FAERS Safety Report 4809838-X (Version None)
Quarter: 2005Q4

REPORT INFORMATION
  Report Type: 
  Country: None (occurrence: None)
  Receive Date: 20051026
  Receipt Date: 20051018
  Transmission Date: 20060501
  Serious: Yes (Other)
  Sender: FDA-Public Use
  Company Number: US-JNJFOC-20051004114

PATIENT
  Sex: Female
  Weight: 69.85 kg

DRUGS (4)
  1. REMICADE [Suspect]
     Indication: ANKYLOSING SPONDYLITIS
     Route: 042
  2. PREDNISONE TAB [Concomitant]
     Indication: ANKYLOSING SPONDYLITIS
  3. ANALGESICS [Concomitant]
     Indication: ANKYLOSING SPONDYLITIS
  4. NSAIDS [Concomitant]
     Indication: ANKYLOSING SPONDYLITIS

REACTIONS (2)
  - INFUSION RELATED REACTION [None]
  - MOVEMENT DISORDER [None]
